FAERS Safety Report 9036437 (Version 1)
Quarter: 2013Q1

REPORT INFORMATION
  Report Type: Spontaneous
  Country: US (occurrence: None)
  Receive Date: 20130117
  Receipt Date: 20130117
  Transmission Date: 20140127
  Serious: Yes (Hospitalization)
  Sender: FDA-Public Use
  Company Number: None

PATIENT
  Age: 85 Year
  Sex: Female
  Weight: 109 kg

DRUGS (11)
  1. XARELTO [Suspect]
     Indication: ATRIAL FIBRILLATION
     Dosage: 20 MG QHS, PO
     Route: 048
  2. MELOXICAM [Suspect]
     Indication: PAIN
     Route: 048
  3. NORCO [Concomitant]
  4. ATORVASTATIN [Concomitant]
  5. SENNA [Concomitant]
  6. HYDRALAZINE [Concomitant]
  7. FUROSEMIDE [Concomitant]
  8. MULTIVITAMIN [Concomitant]
  9. CHOLECALCIFEROL [Concomitant]
  10. CALTRATE [Concomitant]
  11. METAMUCIL [Concomitant]

REACTIONS (6)
  - Syncope [None]
  - Haemoglobin decreased [None]
  - Rectal haemorrhage [None]
  - Gastric ulcer [None]
  - Haemorrhoids [None]
  - Renal impairment [None]
